FAERS Safety Report 15867613 (Version 5)
Quarter: 2019Q3

REPORT INFORMATION
  Report Type: Spontaneous
  Country: JP (occurrence: JP)
  Receive Date: 20190125
  Receipt Date: 20190730
  Transmission Date: 20191004
  Serious: Yes (Death, Hospitalization)
  Sender: FDA-Public Use
  Company Number: JP-ACTELION-A-CH2019-185197

PATIENT
  Age: 30 Year
  Sex: Male

DRUGS (1)
  1. EPOPROSTENOL ACT [Suspect]
     Active Substance: EPOPROSTENOL
     Indication: PULMONARY ARTERIAL HYPERTENSION
     Dosage: 40 NG/KG, PER MIN
     Route: 042

REACTIONS (5)
  - Infection [Fatal]
  - Cardio-respiratory arrest [Fatal]
  - Haemorrhage intracranial [Not Recovered/Not Resolved]
  - Product deposit [Unknown]
  - Device occlusion [Unknown]

NARRATIVE: CASE EVENT DATE: 20190116
